FAERS Safety Report 10388829 (Version 1)
Quarter: 2014Q1

REPORT INFORMATION
  Report Type: Spontaneous
  Country: US (occurrence: None)
  Receive Date: 20140306
  Receipt Date: 20140306
  Transmission Date: 20141002
  Serious: Yes (Other)
  Sender: FDA-Public Use
  Company Number: 163-21880-13105000

PATIENT
  Age: 72 Year
  Sex: Female

DRUGS (3)
  1. REVLIMID(LENALIDOMIDE)(20 MILLIGRAM, CAPSULES) [Suspect]
     Indication: PLASMA CELL MYELOMA
     Dosage: 21 IN 21 D, TEM. IINTERRUPTED
     Route: 048
     Dates: start: 20130920
  2. DEXAMETHASONE(DEXAMETHASONE) (TABLETS) [Concomitant]
  3. ASPIRIN(ACETYLSALICYLIC ACID)(UNKNOWN) [Concomitant]

REACTIONS (1)
  - Thrombophlebitis superficial [None]
